FAERS Safety Report 8880728 (Version 1)
Quarter: 2012Q4

REPORT INFORMATION
  Report Type: 
  Country: US (occurrence: US)
  Receive Date: 20121101
  Receipt Date: 20121101
  Transmission Date: 20130627
  Serious: Yes (Other)
  Sender: FDA-Public Use
  Company Number: US-GLAXOSMITHKLINE-A0999367A

PATIENT
  Age: 50 Year
  Sex: Female

DRUGS (1)
  1. VOTRIENT [Suspect]
     Indication: MALIGNANT URINARY TRACT NEOPLASM
     Dosage: 800MG Per day
     Route: 065
     Dates: start: 201210

REACTIONS (2)
  - Cholecystectomy [Unknown]
  - Gallbladder disorder [Unknown]
